FAERS Safety Report 9970266 (Version 1)
Quarter: 2014Q1

REPORT INFORMATION
  Report Type: Spontaneous
  Country: JP (occurrence: None)
  Receive Date: 20140304
  Receipt Date: 20140304
  Transmission Date: 20141002
  Serious: Yes (Death)
  Sender: FDA-Public Use
  Company Number: JP-014825

PATIENT
  Age: 89 Year
  Sex: Male

DRUGS (3)
  1. DEGARELIX [Suspect]
     Indication: PROSTATE CANCER
     Route: 058
     Dates: start: 20131218, end: 20131218
  2. UFT [Concomitant]
  3. CORTICOSTEROID NOS [Concomitant]

REACTIONS (2)
  - Prostate cancer [None]
  - Condition aggravated [None]
